FAERS Safety Report 4575053-0 (Version None)
Quarter: 2005Q1

REPORT INFORMATION
  Report Type: 
  Country: None (occurrence: None)
  Receive Date: 20050208
  Receipt Date: 20041123
  Transmission Date: 20050727
  Serious: Yes (Other)
  Sender: FDA-Public Use
  Company Number: US-GLAXOSMITHKLINE-A0534902A

PATIENT
  Age: 16 Year
  Sex: Female
  Weight: 50.9 kg

DRUGS (8)
  1. PAXIL CR [Suspect]
     Indication: DRUG USE FOR UNKNOWN INDICATION
     Dosage: 25MG TWICE PER DAY
     Route: 048
  2. PROVIGIL [Suspect]
     Indication: DRUG USE FOR UNKNOWN INDICATION
     Dosage: 400MG THREE TIMES PER DAY
  3. SEROQUEL [Concomitant]
     Dosage: 200MG TWICE PER DAY
  4. TENEX [Concomitant]
     Dosage: .5MG TWICE PER DAY
  5. FLOVENT [Concomitant]
  6. RHINOCORT [Concomitant]
  7. ZANTAC [Concomitant]
     Dosage: 75MG TWICE PER DAY
     Route: 048
  8. WELLBUTRIN SR [Concomitant]
     Dosage: 100MG PER DAY

REACTIONS (5)
  - CONFUSIONAL STATE [None]
  - HALLUCINATION [None]
  - ILL-DEFINED DISORDER [None]
  - MYDRIASIS [None]
  - SOMNOLENCE [None]
